FAERS Safety Report 4972647-5 (Version None)
Quarter: 2006Q1

REPORT INFORMATION
  Report Type: 
  Country: None (occurrence: None)
  Receive Date: 20060216
  Receipt Date: 20051102
  Transmission Date: 20060701
  Serious: No
  Sender: FDA-Public Use
  Company Number: 200511IM000698

PATIENT
  Age: 63 Year
  Sex: Female
  Weight: 85.7298 kg

DRUGS (15)
  1. BLINDED THERAPY (INTERFERON GAMMA-1B) [Suspect]
     Indication: IDIOPATHIC PULMONARY FIBROSIS
     Dosage: 200 UG, TIW, SUBCUTANEOUS
     Route: 058
     Dates: start: 20041108
  2. AZITHROMYCIN [Concomitant]
  3. BENZONATATE [Concomitant]
  4. TYLENOL [Concomitant]
  5. NEXIUM [Concomitant]
  6. GLUCOSAMINE/CHONDROITIN [Concomitant]
  7. NASACORT [Concomitant]
  8. FLAXSEED [Concomitant]
  9. BLACK COHOSH [Concomitant]
  10. VITAMIN E [Concomitant]
  11. ASCORBIC ACID [Concomitant]
  12. VITAMIN B-12 [Concomitant]
  13. LASIX [Concomitant]
  14. ASPIRIN [Concomitant]
  15. BEXTRA [Concomitant]

REACTIONS (1)
  - CHEST PAIN [None]
